FAERS Safety Report 18732535 (Version 1)
Quarter: 2021Q1

REPORT INFORMATION
  Report Type: Spontaneous
  Country: CH (occurrence: CH)
  Receive Date: 20210113
  Receipt Date: 20210113
  Transmission Date: 20210419
  Serious: Yes (Other)
  Sender: FDA-Public Use
  Company Number: CH-TEVA-2020-CH-1864228

PATIENT
  Age: 63 Year
  Sex: Male

DRUGS (2)
  1. XELODA [Concomitant]
     Active Substance: CAPECITABINE
     Route: 065
  2. GEMCITABIN?TEVA [Suspect]
     Active Substance: GEMCITABINE
     Dosage: LIQUID CONC. PERF 2 G/50ML FLAC 1 PCE
     Route: 065
     Dates: start: 202101

REACTIONS (2)
  - Liver injury [Not Recovered/Not Resolved]
  - Off label use [Unknown]

NARRATIVE: CASE EVENT DATE: 202101
